FAERS Safety Report 4816911-9 (Version None)
Quarter: 2005Q4

REPORT INFORMATION
  Report Type: 
  Country: None (occurrence: None)
  Receive Date: 20051031
  Receipt Date: 20051031
  Transmission Date: 20060501
  Serious: Yes (Hospitalization)
  Sender: FDA-Public Use
  Company Number: None

PATIENT
  Sex: Male
  Weight: 98.4306 kg

DRUGS (22)
  1. ENALPRIL [Suspect]
     Indication: DIABETES MELLITUS
     Dosage: 10 MG DAILY [RENEWED 3/15/05]
     Dates: start: 20050315
  2. ENALPRIL [Suspect]
     Indication: HYPERTENSION
     Dosage: 10 MG DAILY [RENEWED 3/15/05]
     Dates: start: 20050315
  3. ALBUTEROL [Concomitant]
  4. ARTIFICAL TEARS POLYVINYL ALCOHOL [Concomitant]
  5. ASPIRIN [Concomitant]
  6. ATENOLOL [Concomitant]
  7. CLOTRIMAZOLE [Concomitant]
  8. FLUNISOLIDE IHN [Concomitant]
  9. FUROSEMIDE [Concomitant]
  10. GOSERELINE ACETATE IMPLANT SYRINE [Concomitant]
  11. HYDROCODONE 5/ACETAMINOPHEN [Concomitant]
  12. SYNTHROID [Concomitant]
  13. LOVASTATIN [Concomitant]
  14. MENTHOL 10% /METHYL SALICYLATE [Concomitant]
  15. MILK OF MAGNESIA TAB [Concomitant]
  16. MULTI-VITAMIN [Concomitant]
  17. NYSTATIN [Concomitant]
  18. PAROXETINE HCL [Concomitant]
  19. PSYLLIUM SF [Concomitant]
  20. SENNOSIDES [Concomitant]
  21. TERAZOSIN HCL [Concomitant]
  22. TRAZODONE HCL [Concomitant]

REACTIONS (2)
  - ASTHENIA [None]
  - HYPERKALAEMIA [None]
